FAERS Safety Report 4289386-9 (Version None)
Quarter: 2004Q1

REPORT INFORMATION
  Report Type: 
  Country: None (occurrence: None)
  Receive Date: 20040126
  Receipt Date: 20030925
  Transmission Date: 20041129
  Serious: No
  Sender: FDA-Public Use
  Company Number: USA030948315

PATIENT
  Age: 65 Year
  Sex: Female
  Weight: 71 kg

DRUGS (4)
  1. FORTEO [Suspect]
     Indication: OSTEOPOROSIS
     Dosage: 20 UG/DAY
     Dates: start: 20030924
  2. PROPOXYPHENE HCL [Concomitant]
  3. VICODIN [Concomitant]
  4. ATIVAN [Concomitant]

REACTIONS (2)
  - HEADACHE [None]
  - INJECTION SITE URTICARIA [None]
